FAERS Safety Report 5261001-7 (Version None)
Quarter: 2007Q1

REPORT INFORMATION
  Report Type: 
  Country: None (occurrence: None)
  Receive Date: 20070306
  Receipt Date: 20070221
  Transmission Date: 20070707
  Serious: Yes (Other)
  Sender: FDA-Public Use
  Company Number: 2007RR-05968

PATIENT
  Age: 86 Year
  Sex: Male

DRUGS (1)
  1. AMOXICILLIN + CLAVULANATE POTASSIUM [Suspect]
     Dosage: SEE IMAGE

REACTIONS (7)
  - CHEYNE-STOKES RESPIRATION [None]
  - COMA [None]
  - EXTRAPYRAMIDAL DISORDER [None]
  - MENINGITIS ASEPTIC [None]
  - SKIN GRAFT [None]
  - SOMNOLENCE [None]
  - VARICOSE ULCERATION [None]
